FAERS Safety Report 9171717 (Version 4)
Quarter: 2013Q4

REPORT INFORMATION
  Report Type: Spontaneous
  Country: US (occurrence: None)
  Receive Date: 20130318
  Receipt Date: 20131107
  Transmission Date: 20140711
  Serious: Yes (Death, Other)
  Sender: FDA-Public Use
  Company Number: AG-2013-0847

PATIENT
  Age: 6 Month
  Sex: 0

DRUGS (3)
  1. BUSULFAN [Suspect]
     Indication: BONE MARROW TRANSPLANT
  2. ETOPOSIDE [Suspect]
     Indication: BONE MARROW TRANSPLANT
  3. CYCLOPHOSPHAMIDE [Suspect]
     Indication: BONE MARROW TRANSPLANT

REACTIONS (3)
  - Venoocclusive liver disease [None]
  - Multi-organ failure [None]
  - Off label use [None]
